FAERS Safety Report 4683960-3 (Version None)
Quarter: 2005Q2

REPORT INFORMATION
  Report Type: 
  Country: None (occurrence: None)
  Receive Date: 20050607
  Receipt Date: 20050310
  Transmission Date: 20051028
  Serious: Yes (Disabling, Other)
  Sender: FDA-Public Use
  Company Number: US-MERCK-0503USA02313

PATIENT
  Age: 56 Year
  Sex: Male
  Weight: 75 kg

DRUGS (9)
  1. VIOXX [Suspect]
     Indication: RHEUMATOID ARTHRITIS
     Route: 048
     Dates: start: 19990101, end: 20040930
  2. HYDROCODONE BITARTRATE [Concomitant]
     Indication: PAIN
     Route: 065
     Dates: start: 20000101
  3. LISINOPRIL [Concomitant]
     Indication: HYPERTENSION
     Route: 065
  4. LISINOPRIL [Concomitant]
     Indication: OEDEMA
     Route: 065
  5. ASPIRIN [Concomitant]
     Indication: HYPERTENSION
     Route: 048
     Dates: start: 20000101
  6. ZOCOR [Concomitant]
     Indication: BLOOD CHOLESTEROL INCREASED
     Route: 048
     Dates: start: 20030101
  7. NAPROXEN [Concomitant]
     Indication: PAIN
     Route: 065
  8. CEFCAPENE PIVOXIL HYDROCHLORIDE [Concomitant]
     Route: 065
  9. FAMOTIDINE [Concomitant]
     Route: 065

REACTIONS (18)
  - CARDIAC FAILURE [None]
  - CARDIAC FAILURE CONGESTIVE [None]
  - CHRONIC OBSTRUCTIVE PULMONARY DISEASE [None]
  - CONVULSION [None]
  - DYSPEPSIA [None]
  - DYSPNOEA [None]
  - EMOTIONAL DISTRESS [None]
  - GASTROOESOPHAGEAL REFLUX DISEASE [None]
  - HYPOGLYCAEMIA [None]
  - LOSS OF CONSCIOUSNESS [None]
  - MITRAL VALVE INCOMPETENCE [None]
  - MYOCARDIAL INFARCTION [None]
  - PULMONARY EMBOLISM [None]
  - RENAL CELL CARCINOMA STAGE UNSPECIFIED [None]
  - RENAL FAILURE [None]
  - RENAL MASS [None]
  - SYNCOPE [None]
  - TRICUSPID VALVE INCOMPETENCE [None]
